FAERS Safety Report 25177968 (Version 1)
Quarter: 2025Q2

REPORT INFORMATION
  Report Type: Spontaneous
  Country: US (occurrence: US)
  Receive Date: 20250409
  Receipt Date: 20250409
  Transmission Date: 20250716
  Serious: Yes (Other)
  Sender: RUBICON RESEARCH
  Company Number: US-Rubicon research Pvt ltd-2025000046

PATIENT

DRUGS (1)
  1. CARVEDILOL [Suspect]
     Active Substance: CARVEDILOL
     Indication: Product used for unknown indication
     Route: 065

REACTIONS (3)
  - Angina pectoris [Unknown]
  - Therapeutic response decreased [Unknown]
  - Product substitution issue [Unknown]
